FAERS Safety Report 16532905 (Version 2)
Quarter: 2019Q3

REPORT INFORMATION
  Report Type: Spontaneous
  Country: FR (occurrence: FR)
  Receive Date: 20190705
  Receipt Date: 20190710
  Transmission Date: 20191004
  Serious: Yes (Life-Threatening, Hospitalization)
  Sender: FDA-Public Use
  Company Number: FR-MYLANLABS-2019M1062204

PATIENT
  Age: 13 Year
  Sex: Female
  Weight: 44 kg

DRUGS (13)
  1. ETOPOSIDE MYLAN 20 MG/ML, SOLUTION ? DILUER POUR PERFUSION [Suspect]
     Active Substance: ETOPOSIDE
     Dosage: 112 MILLIGRAM, QD
     Route: 042
     Dates: start: 20161212, end: 20161212
  2. ATARAX [Concomitant]
     Active Substance: HYDROXYZINE HYDROCHLORIDE
     Dosage: UNK
  3. ENDOXAN                            /00021101/ [Suspect]
     Active Substance: CYCLOPHOSPHAMIDE
     Indication: BONE SARCOMA
     Dosage: 1520 MILLIGRAM, QD
     Route: 042
     Dates: start: 20161212, end: 20161212
  4. PLITICAN [Concomitant]
     Active Substance: ALIZAPRIDE HYDROCHLORIDE
     Dosage: UNK
  5. GAVISCON                           /01279101/ [Concomitant]
     Dosage: UNK
  6. ETOPOSIDE MYLAN 20 MG/ML, SOLUTION ? DILUER POUR PERFUSION [Suspect]
     Active Substance: ETOPOSIDE
     Indication: BONE SARCOMA
     Dosage: 116 MILLIGRAM, QD
     Route: 042
     Dates: start: 20160820, end: 20160823
  7. FORLAX [Concomitant]
     Active Substance: POLYETHYLENE GLYCOL 4000
     Dosage: UNK
  8. LUTENYL [Concomitant]
     Active Substance: NOMEGESTROL ACETATE
     Dosage: UNK
  9. OROKEN [Concomitant]
     Active Substance: CEFIXIME
     Dosage: UNK
  10. FUNGIZONE [Concomitant]
     Active Substance: AMPHOTERICIN B
     Dosage: UNK
  11. TITANOREINE                        /08437001/ [Concomitant]
     Dosage: UNK
  12. IFOSFAMIDE EG [Suspect]
     Active Substance: IFOSFAMIDE
     Indication: PRODUCT USED FOR UNKNOWN INDICATION
     Dosage: 4640 MILLIGRAM, QD
     Route: 042
     Dates: start: 20160820, end: 20160823
  13. ZOPHREN                            /00955302/ [Concomitant]
     Active Substance: ONDANSETRON
     Dosage: UNK

REACTIONS (5)
  - Oesophagitis [Recovered/Resolved]
  - Anaemia [Recovered/Resolved]
  - Vomiting [Recovered/Resolved]
  - Bone marrow failure [Recovered/Resolved]
  - Agranulocytosis [Recovered/Resolved]

NARRATIVE: CASE EVENT DATE: 201608
